FAERS Safety Report 25982817 (Version 1)
Quarter: 2025Q4

REPORT INFORMATION
  Report Type: Spontaneous
  Country: US (occurrence: US)
  Receive Date: 20251031
  Receipt Date: 20251031
  Transmission Date: 20260118
  Serious: Yes (Hospitalization)
  Sender: Onesource Specialty Pharma
  Company Number: US-STRIDES ARCOLAB LIMITED-2025OS001072

PATIENT
  Age: 18 Year
  Sex: Female

DRUGS (14)
  1. ACETYLCYSTEINE [Suspect]
     Active Substance: ACETYLCYSTEINE
     Indication: Psychiatric care
     Dosage: 60 MILLIGRAM, BID
     Route: 065
  2. CLONIDINE [Suspect]
     Active Substance: CLONIDINE
     Indication: Psychiatric care
     Dosage: 0.1 MILLIGRAM, QW
     Route: 065
  3. OXCARBAZEPINE [Suspect]
     Active Substance: OXCARBAZEPINE
     Indication: Psychiatric care
     Dosage: 300 MILLIGRAM, BID
     Route: 065
  4. FLUOXETINE [Suspect]
     Active Substance: FLUOXETINE HYDROCHLORIDE
     Indication: Psychiatric care
     Dosage: 30 MILLIGRAM, QD
     Route: 065
  5. HALOPERIDOL [Suspect]
     Active Substance: HALOPERIDOL
     Indication: Psychiatric care
     Dosage: THREE TIMES A DAY
     Route: 065
  6. MELATONIN [Suspect]
     Active Substance: MELATONIN
     Indication: Psychiatric care
     Dosage: 5 MILLIGRAM, QD
     Route: 065
  7. LORAZEPAM [Suspect]
     Active Substance: LORAZEPAM
     Indication: Psychiatric care
     Dosage: 1.5 MILLIGRAM, EVERY MORNING
     Route: 065
  8. LORAZEPAM [Suspect]
     Active Substance: LORAZEPAM
     Dosage: 1.5 MILLIGRAM, NOON
     Route: 065
  9. LORAZEPAM [Suspect]
     Active Substance: LORAZEPAM
     Dosage: 2 MILLIGRAM, AT BED TIME
     Route: 065
  10. VALPROIC ACID [Interacting]
     Active Substance: VALPROIC ACID
     Indication: Psychiatric care
     Dosage: 500 MILLIGRAM, BID
     Route: 065
  11. CLOZAPINE [Interacting]
     Active Substance: CLOZAPINE
     Indication: Psychiatric care
     Dosage: 12.5 MILLIGRAM, QD
     Route: 065
  12. CLOZAPINE [Interacting]
     Active Substance: CLOZAPINE
     Dosage: 62.5 MILLIGRAM, QD
     Route: 065
  13. CLOZAPINE [Interacting]
     Active Substance: CLOZAPINE
     Dosage: 50 MILLIGRAM, QD
     Route: 065
  14. DEXMEDETOMIDINE [Concomitant]
     Active Substance: DEXMEDETOMIDINE
     Indication: Agitation
     Dosage: UNK
     Route: 065

REACTIONS (3)
  - Orthostatic hypotension [None]
  - Therapy non-responder [Unknown]
  - Off label use [Unknown]
